FAERS Safety Report 16292274 (Version 1)
Quarter: 2019Q2

REPORT INFORMATION
  Report Type: Spontaneous
  Country: CN (occurrence: CN)
  Receive Date: 20190509
  Receipt Date: 20190509
  Transmission Date: 20190711
  Serious: Yes (Hospitalization)
  Sender: FDA-Public Use
  Company Number: CN-BAXTER-2019BAX009121

PATIENT
  Age: 44 Year
  Sex: Female
  Weight: 51 kg

DRUGS (10)
  1. 5% GLUCOSE  INJECTION [Suspect]
     Active Substance: DEXTROSE
     Dosage: DOSE RE-INTRODUCED, DOCETAXEL + GS
     Route: 041
  2. 5% GLUCOSE  INJECTION [Suspect]
     Active Substance: DEXTROSE
     Dosage: DOCETAXEL 110 MG + GS 500 ML
     Route: 041
     Dates: start: 20190329, end: 20190329
  3. ENDOXAN [Suspect]
     Active Substance: CYCLOPHOSPHAMIDE
     Indication: BREAST CANCER
     Dosage: CYCLOPHOSPHAMIDE 0.9 G + NS 100 ML
     Route: 041
     Dates: start: 20190329, end: 20190329
  4. 5% GLUCOSE  INJECTION [Suspect]
     Active Substance: DEXTROSE
     Indication: MEDICATION DILUTION
     Dosage: DOCETAXEL 110 MG + GS 500 ML
     Route: 041
     Dates: start: 20190329, end: 20190329
  5. SODIUM CHLORIDE. [Suspect]
     Active Substance: SODIUM CHLORIDE
     Dosage: DOSE RE-INTRODUCED, CYCLOPHOSPHAMIDE + NS
     Route: 041
  6. ENDOXAN [Suspect]
     Active Substance: CYCLOPHOSPHAMIDE
     Dosage: DOSE RE-INTRODUCED, CYCLOPHOSPHAMIDE + NS
     Route: 041
  7. AISU [Suspect]
     Active Substance: DOCETAXEL
     Dosage: DOSE RE-INTRODUCED, DOCETAXEL + GS
     Route: 041
  8. SODIUM CHLORIDE. [Suspect]
     Active Substance: SODIUM CHLORIDE
     Indication: MEDICATION DILUTION
     Dosage: CYCLOPHOSPHAMIDE 0.9 G + NS 100 ML
     Route: 041
     Dates: start: 20190329, end: 20190329
  9. AISU [Suspect]
     Active Substance: DOCETAXEL
     Indication: BREAST CANCER
     Dosage: DOCETAXEL 110 MG + GS 500 ML
     Route: 041
     Dates: start: 20190329, end: 20190329
  10. AISU [Suspect]
     Active Substance: DOCETAXEL
     Dosage: DOCETAXEL 110 MG + GS 500 ML
     Route: 041
     Dates: start: 20190329, end: 20190329

REACTIONS (1)
  - Bone marrow failure [Recovering/Resolving]

NARRATIVE: CASE EVENT DATE: 20190404
